FAERS Safety Report 17901250 (Version 1)
Quarter: 2020Q2

REPORT INFORMATION
  Report Type: Spontaneous
  Country: US (occurrence: US)
  Receive Date: 20200616
  Receipt Date: 20200616
  Transmission Date: 20200714
  Serious: Yes (Other)
  Sender: FDA-Public Use
  Company Number: US-PFIZER INC-2020225391

PATIENT
  Age: 45 Year
  Sex: Female
  Weight: 115.67 kg

DRUGS (2)
  1. CHAPSTICK CLASSIC CHERRY [Suspect]
     Active Substance: PETROLATUM
     Indication: CHAPPED LIPS
     Dosage: UNK, AS NEEDED
     Dates: end: 2020
  2. CHAPSTICK CLASSIC STRAWBERRY [Suspect]
     Active Substance: PETROLATUM
     Indication: CHAPPED LIPS
     Dosage: UNK, AS NEEDED
     Dates: end: 2020

REACTIONS (4)
  - Lip erythema [Recovered/Resolved]
  - Neoplasm malignant [Unknown]
  - Diabetes mellitus [Unknown]
  - Lip swelling [Recovered/Resolved]

NARRATIVE: CASE EVENT DATE: 20050214
